FAERS Safety Report 9915482 (Version 1)
Quarter: 2014Q1

REPORT INFORMATION
  Report Type: Spontaneous
  Country: DE (occurrence: DE)
  Receive Date: 20140221
  Receipt Date: 20140221
  Transmission Date: 20141002
  Serious: Yes (Other)
  Sender: FDA-Public Use
  Company Number: DE-009507513-1402DEU009007

PATIENT
  Age: 66 Year
  Sex: Male

DRUGS (1)
  1. JANUMET [Suspect]
     Indication: DIABETES MELLITUS
     Dosage: 50/1000 MG, BID
     Route: 048
     Dates: start: 201008

REACTIONS (2)
  - Pancreatic carcinoma metastatic [Not Recovered/Not Resolved]
  - Metastases to liver [Not Recovered/Not Resolved]
